FAERS Safety Report 7628667-5 (Version None)
Quarter: 2011Q3

REPORT INFORMATION
  Report Type: 
  Country: None (occurrence: None)
  Receive Date: 20110714
  Receipt Date: 20110629
  Transmission Date: 20111222
  Serious: Yes (Hospitalization, Disabling)
  Sender: FDA-Public Use
  Company Number: TCI2011A03782

PATIENT
  Age: 56 Year
  Sex: Male

DRUGS (2)
  1. ACTOS [Suspect]
     Indication: TYPE 2 DIABETES MELLITUS
     Dosage: 15MG (15MG, 1 D) PER ORAL
     Route: 048
     Dates: start: 20080924, end: 20090120
  2. ANGIOTENSIN II ANTAGONISTS [Concomitant]

REACTIONS (1)
  - LARGE INTESTINE CARCINOMA [None]
